FAERS Safety Report 10726563 (Version 1)
Quarter: 2015Q1

REPORT INFORMATION
  Report Type: Spontaneous
  Country: PT (occurrence: PT)
  Receive Date: 20150121
  Receipt Date: 20150121
  Transmission Date: 20150721
  Serious: Yes (Other)
  Sender: FDA-Public Use
  Company Number: PT-AMGEN-PRTSP2015003165

PATIENT
  Age: 50 Year
  Sex: Female

DRUGS (2)
  1. MIMPARA [Suspect]
     Active Substance: CINACALCET HYDROCHLORIDE
     Indication: HYPERPARATHYROIDISM
     Dosage: 30 MG, QD
     Route: 048
     Dates: start: 2010, end: 201109
  2. ALENDRONIC ACID [Concomitant]
     Active Substance: ALENDRONIC ACID
     Indication: BONE DENSITY DECREASED
     Dosage: UNK
     Dates: start: 201003, end: 201109

REACTIONS (9)
  - Bone pain [Recovered/Resolved]
  - Urinary tract infection [Unknown]
  - Emotional distress [Unknown]
  - Hip fracture [Unknown]
  - Low turnover osteopathy [Recovering/Resolving]
  - Activities of daily living impaired [Recovered/Resolved]
  - Vascular calcification [Unknown]
  - Fall [Unknown]
  - Blood parathyroid hormone increased [Unknown]

NARRATIVE: CASE EVENT DATE: 201006
